FAERS Safety Report 6269889-8 (Version None)
Quarter: 2009Q3

REPORT INFORMATION
  Report Type: 
  Country: None (occurrence: None)
  Receive Date: 20090716
  Receipt Date: 20090709
  Transmission Date: 20100115
  Serious: Yes (Other)
  Sender: FDA-Public Use
  Company Number: US-ABBOTT-09P-163-0584222-00

PATIENT
  Sex: Female
  Weight: 79.45 kg

DRUGS (2)
  1. SYNTHROID [Suspect]
     Indication: HYPOTHYROIDISM
     Route: 048
     Dates: start: 19860101
  2. PROTONIX [Concomitant]
     Indication: GASTROOESOPHAGEAL REFLUX DISEASE
     Route: 048

REACTIONS (5)
  - EYE IRRITATION [None]
  - EYE PRURITUS [None]
  - MENINGEAL NEOPLASM [None]
  - TOOTH INFECTION [None]
  - TRANSIENT ISCHAEMIC ATTACK [None]
